FAERS Safety Report 15343858 (Version 2)
Quarter: 2018Q4

REPORT INFORMATION
  Report Type: Report from Study
  Country: CA (occurrence: CA)
  Receive Date: 20180903
  Receipt Date: 20181214
  Transmission Date: 20190204
  Serious: Yes (Other)
  Sender: FDA-Public Use
  Company Number: CA-GLAXOSMITHKLINE-CA2018GSK155893

PATIENT
  Age: 31 Year
  Sex: Female

DRUGS (2)
  1. VENTOLIN [Suspect]
     Active Substance: ALBUTEROL SULFATE
     Indication: ASTHMA
     Dosage: UNK
  2. MEPOLIZUMAB [Suspect]
     Active Substance: MEPOLIZUMAB
     Indication: ASTHMA
     Dosage: 100 MG, Z (MONTHLY)
     Route: 042

REACTIONS (15)
  - Anosmia [Unknown]
  - Nasal obstruction [Unknown]
  - Nasal congestion [Unknown]
  - Asthma [Unknown]
  - Sinus congestion [Unknown]
  - Rhinorrhoea [Unknown]
  - Paranasal sinus discomfort [Unknown]
  - Staphylococcal infection [Unknown]
  - Dysgeusia [Unknown]
  - Ocular hyperaemia [Unknown]
  - Sinusitis bacterial [Unknown]
  - Blood count abnormal [Unknown]
  - Cerebrospinal fluid leakage [Unknown]
  - Lacrimation increased [Unknown]
  - Rhinitis allergic [Unknown]

NARRATIVE: CASE EVENT DATE: 20160105
